FAERS Safety Report 5737707-X (Version None)
Quarter: 2008Q2

REPORT INFORMATION
  Report Type: 
  Country: None (occurrence: None)
  Receive Date: 20080512
  Receipt Date: 20080512
  Transmission Date: 20081010
  Serious: Yes (Life-Threatening, Other)
  Sender: FDA-Public Use
  Company Number: None

PATIENT
  Age: 67 Year
  Sex: Female
  Weight: 63.05 kg

DRUGS (2)
  1. DIGITEK 125 MCG ACTAVIS TOTOWA [Suspect]
     Indication: ARRHYTHMIA
     Dosage: 1 DAY PO
     Route: 048
     Dates: start: 20071101, end: 20080507
  2. DIGITEK 125 MCG ACTAVIS TOTOWA [Suspect]
     Indication: CARDIAC FAILURE
     Dosage: 1 DAY PO
     Route: 048
     Dates: start: 20071101, end: 20080507

REACTIONS (22)
  - ASTHENIA [None]
  - BRADYCARDIA [None]
  - CARDIAC DISORDER [None]
  - CONFUSIONAL STATE [None]
  - DEHYDRATION [None]
  - DEPRESSED LEVEL OF CONSCIOUSNESS [None]
  - DIARRHOEA [None]
  - DIZZINESS [None]
  - FALL [None]
  - FATIGUE [None]
  - HEART RATE DECREASED [None]
  - HEART RATE INCREASED [None]
  - HEART RATE IRREGULAR [None]
  - HYPOTENSION [None]
  - NAUSEA [None]
  - ORTHOPNOEA [None]
  - PALPITATIONS [None]
  - PHARMACEUTICAL PRODUCT COMPLAINT [None]
  - POLLAKIURIA [None]
  - SWELLING [None]
  - URINE OUTPUT DECREASED [None]
  - VISUAL DISTURBANCE [None]
